FAERS Safety Report 5321673-5 (Version None)
Quarter: 2007Q2

REPORT INFORMATION
  Report Type: 
  Country: None (occurrence: None)
  Receive Date: 20070510
  Receipt Date: 20070430
  Transmission Date: 20071010
  Serious: Yes (Other)
  Sender: FDA-Public Use
  Company Number: US-PFIZER INC-2007034930

PATIENT
  Sex: Female

DRUGS (5)
  1. NORVASC [Suspect]
     Indication: RAYNAUD'S PHENOMENON
  2. PROCARDIA [Suspect]
     Indication: RAYNAUD'S PHENOMENON
  3. REVATIO [Suspect]
     Indication: RAYNAUD'S PHENOMENON
  4. TRACLEER [Suspect]
     Dates: start: 20060101, end: 20060101
  5. PLAVIX [Concomitant]
     Indication: RAYNAUD'S PHENOMENON

REACTIONS (3)
  - GENERALISED OEDEMA [None]
  - OEDEMA [None]
  - PULMONARY HYPERTENSION [None]
